FAERS Safety Report 21311376 (Version 2)
Quarter: 2022Q4

REPORT INFORMATION
  Report Type: Report from Study
  Country: US (occurrence: US)
  Receive Date: 20220909
  Receipt Date: 20221116
  Transmission Date: 20230112
  Serious: Yes (Other)
  Sender: FDA-Public Use
  Company Number: US-BRISTOL-MYERS SQUIBB COMPANY-2022-100931

PATIENT
  Age: 65 Year
  Sex: Female
  Weight: 78.47 kg

DRUGS (2)
  1. REVLIMID [Suspect]
     Active Substance: LENALIDOMIDE
     Indication: Plasma cell myeloma
     Dosage: DAILY 1- 21 DAYS OUT OF 28-DAY CYCLE
     Route: 048
     Dates: start: 202208
  2. REVLIMID [Suspect]
     Active Substance: LENALIDOMIDE
     Dosage: FREQUENCY DAYS 1-21 OF 28 DAY CYCLE
     Route: 048
     Dates: start: 202208

REACTIONS (8)
  - Constipation [Unknown]
  - Dry mouth [Unknown]
  - Psychomotor hyperactivity [Unknown]
  - Fatigue [Unknown]
  - Cognitive disorder [Unknown]
  - Feeling abnormal [Unknown]
  - Speech disorder [Unknown]
  - Insomnia [Unknown]
